FAERS Safety Report 9295098 (Version 1)
Quarter: 2013Q1

REPORT INFORMATION
  Report Type: Spontaneous
  Country: US (occurrence: None)
  Receive Date: 20121227
  Receipt Date: 20121227
  Transmission Date: 20140127
  Serious: Yes (Other)
  Sender: FDA-Public Use
  Company Number: PHEH2011US009375

PATIENT
  Age: 74 Year
  Sex: Female

DRUGS (1)
  1. EXJADE (*CGP 72670*) UNKNOWN [Suspect]

REACTIONS (1)
  - Diarrhoea [None]
